FAERS Safety Report 7288566 (Version 2)
Quarter: 2014Q1

REPORT INFORMATION
  Report Type: Spontaneous
  Country: US (occurrence: None)
  Receive Date: 20100202
  Receipt Date: 20140207
  Transmission Date: 20141002
  Serious: Yes (Hospitalization, Other)
  Sender: FDA-Public Use
  Company Number: 2010S1000284

PATIENT
  Age: 58 Year
  Sex: Male

DRUGS (7)
  1. FLEET PHOSPHO-SODA ORAL SALINE LAXATIVE, GINGER-LEMON FLAVOR (ORAL SOLUTION) [Suspect]
     Indication: COLONOSCOPY
     Dosage: ; PO
     Route: 048
     Dates: start: 20040829, end: 20040831
  2. GLIPIZIDE (GLIPIZIDE) [Concomitant]
  3. LISINOPRIL (LISINOPRIL) [Concomitant]
  4. METOPROLOL (METOPROLOL) [Concomitant]
  5. ASPIRIN (ACETYLSALICYLIC ACID) [Concomitant]
  6. SIMVASTATIN (SIMVASTATIN) [Concomitant]
  7. HYDROCHLOROTHIAZIDE (HYDROCHLOROTHIAZIDE) [Concomitant]

REACTIONS (9)
  - Renal injury [None]
  - Dizziness [None]
  - Blood pressure decreased [None]
  - Cerebral ischaemia [None]
  - Dizziness [None]
  - Fatigue [None]
  - Decreased appetite [None]
  - Renal failure acute [None]
  - Hypovolaemia [None]
